FAERS Safety Report 24099064 (Version 1)
Quarter: 2024Q3

REPORT INFORMATION
  Report Type: Spontaneous
  Country: US (occurrence: US)
  Receive Date: 20240716
  Receipt Date: 20240716
  Transmission Date: 20241017
  Serious: No
  Sender: NOVO NORDISK
  Company Number: US-NOVOPROD-1166663

PATIENT
  Age: 81 Year
  Sex: Male

DRUGS (3)
  1. OZEMPIC [Suspect]
     Active Substance: SEMAGLUTIDE
     Indication: Type 2 diabetes mellitus
     Dosage: 0.25 MG, QW
     Route: 058
     Dates: start: 20231110
  2. OZEMPIC [Suspect]
     Active Substance: SEMAGLUTIDE
     Indication: Weight control
  3. PIOGLITAZONE [Suspect]
     Active Substance: PIOGLITAZONE
     Indication: Product used for unknown indication
     Dosage: TOOK IT DAILY. PATIENT TOOK IT TWO WEEKS INTO TAKING THE OZEMPIC BEFORE DISCONTINUING IT.

REACTIONS (5)
  - Decreased appetite [Not Recovered/Not Resolved]
  - Nausea [Recovered/Resolved]
  - Dyspepsia [Not Recovered/Not Resolved]
  - Product packaging quantity issue [Unknown]
  - Off label use [Unknown]

NARRATIVE: CASE EVENT DATE: 20231113
